FAERS Safety Report 18124228 (Version 1)
Quarter: 2020Q3

REPORT INFORMATION
  Report Type: Spontaneous
  Country: JP (occurrence: JP)
  Receive Date: 20200807
  Receipt Date: 20200807
  Transmission Date: 20201103
  Serious: Yes (Other)
  Sender: FDA-Public Use
  Company Number: JP-ROCHE-2655876

PATIENT
  Sex: Female

DRUGS (2)
  1. ISODINE [Suspect]
     Active Substance: POVIDONE-IODINE
     Indication: PRODUCT USED FOR UNKNOWN INDICATION
     Dosage: UNK
     Route: 065
  2. LUCENTIS [Suspect]
     Active Substance: RANIBIZUMAB
     Indication: MYOPIA
     Dosage: UNK
     Route: 031

REACTIONS (1)
  - Corneal exfoliation [Recovered/Resolved]

NARRATIVE: CASE EVENT DATE: 20200430
